FAERS Safety Report 6386177-X (Version None)
Quarter: 2009Q4

REPORT INFORMATION
  Report Type: 
  Country: None (occurrence: None)
  Receive Date: 20091002
  Receipt Date: 20081212
  Transmission Date: 20100525
  Serious: No
  Sender: FDA-Public Use
  Company Number: US-ASTRAZENECA-2008UW27928

PATIENT
  Sex: Female
  Weight: 121.6 kg

DRUGS (1)
  1. ARIMIDEX [Suspect]
     Indication: BREAST CANCER
     Route: 048
     Dates: start: 20081015

REACTIONS (5)
  - ARTHRALGIA [None]
  - ASTHENIA [None]
  - DYSPHONIA [None]
  - FALL [None]
  - OROPHARYNGEAL PAIN [None]
